FAERS Safety Report 4828087-2 (Version None)
Quarter: 2005Q4

REPORT INFORMATION
  Report Type: 
  Country: None (occurrence: None)
  Receive Date: 20051110
  Receipt Date: 20051013
  Transmission Date: 20060501
  Serious: Yes (Hospitalization)
  Sender: FDA-Public Use
  Company Number: 200513758GDS

PATIENT
  Age: 73 Year
  Sex: Female

DRUGS (8)
  1. C-FLOX           (CIRPROFLOXACIN) [Suspect]
     Indication: ARTHRITIS INFECTIVE
     Dosage: 750 MG, BID, ORAL
     Route: 048
     Dates: start: 20050401
  2. ALPHAMOX [Concomitant]
  3. CEPHALEXIN [Concomitant]
  4. FOSAMAX [Concomitant]
  5. ZOCOR [Concomitant]
  6. TRITACE [Concomitant]
  7. NOTEN [Concomitant]
  8. ACIMAX [Concomitant]

REACTIONS (7)
  - ABASIA [None]
  - ASTHENIA [None]
  - BALANCE DISORDER [None]
  - FALL [None]
  - PARAESTHESIA [None]
  - RENAL FAILURE CHRONIC [None]
  - VISUAL DISTURBANCE [None]
